FAERS Safety Report 7515215-3 (Version None)
Quarter: 2011Q2

REPORT INFORMATION
  Report Type: 
  Country: None (occurrence: None)
  Receive Date: 20110425
  Receipt Date: 20101020
  Transmission Date: 20111010
  Serious: Yes (Other)
  Sender: FDA-Public Use
  Company Number: MC201000320

PATIENT
  Age: 70 Year
  Sex: Male

DRUGS (6)
  1. VERSED [Concomitant]
  2. ISOVUE (LOPAMIDOL) [Concomitant]
  3. ANGIOMAX [Suspect]
     Indication: ARTERECTOMY WITH GRAFT REPLACEMENT
     Dosage: 0.75 MG, BOLUS, 1.75 MG/KG/HR, 25 ML, HR
     Dates: start: 20101020, end: 20101020
  4. ANGIOMAX [Suspect]
     Indication: ARTERECTOMY WITH GRAFT REPLACEMENT
     Dosage: 0.75 MG, BOLUS, 1.75 MG/KG/HR, 25 ML, HR
     Dates: start: 20101020
  5. ANGIOMAX [Suspect]
     Indication: ARTERECTOMY WITH GRAFT REPLACEMENT
     Dosage: 0.75 MG, BOLUS, 1.75 MG/KG/HR, 25 ML, HR
     Dates: start: 20101020
  6. FENTANYL CITRATE [Concomitant]

REACTIONS (2)
  - OFF LABEL USE [None]
  - THROMBOSIS IN DEVICE [None]
